FAERS Safety Report 14227830 (Version 1)
Quarter: 2017Q4

REPORT INFORMATION
  Report Type: Spontaneous
  Country: IN (occurrence: IN)
  Receive Date: 20171127
  Receipt Date: 20171127
  Transmission Date: 20180321
  Serious: Yes (Other)
  Sender: FDA-Public Use
  Company Number: IN-NOVAST LABORATORIES, LTD-IN-2017NOV000077

PATIENT
  Age: 52 Year
  Sex: Female

DRUGS (2)
  1. NORETHINDRONE. [Suspect]
     Active Substance: NORETHINDRONE
     Indication: ADENOMYOSIS
     Dosage: 5 MG, BID
  2. NORETHINDRONE. [Suspect]
     Active Substance: NORETHINDRONE
     Indication: UTERINE HAEMORRHAGE
     Dosage: 5 MG, TID

REACTIONS (1)
  - Drug-induced liver injury [Recovering/Resolving]
